FAERS Safety Report 20339966 (Version 9)
Quarter: 2023Q1

REPORT INFORMATION
  Report Type: Report from Study
  Country: JP (occurrence: JP)
  Receive Date: 20220117
  Receipt Date: 20230223
  Transmission Date: 20230418
  Serious: Yes (Hospitalization, Other)
  Sender: FDA-Public Use
  Company Number: JP-ASTELLAS-2022JP000557

PATIENT
  Age: 80 Year
  Sex: Male
  Weight: 59.6 kg

DRUGS (4)
  1. ENFORTUMAB VEDOTIN [Suspect]
     Active Substance: ENFORTUMAB VEDOTIN
     Indication: Bladder cancer
     Route: 041
     Dates: start: 20220107, end: 20220121
  2. ENFORTUMAB VEDOTIN [Suspect]
     Active Substance: ENFORTUMAB VEDOTIN
     Indication: Transitional cell carcinoma
     Dosage: 1.00 MG/KG, UNKNOWN FREQ.
     Route: 041
     Dates: start: 20220214, end: 20220413
  3. BETAMETHASONE DIPROPIONATE [Concomitant]
     Active Substance: BETAMETHASONE DIPROPIONATE
     Indication: Rash
     Route: 065
     Dates: start: 20220117, end: 20220314
  4. GLYCOSAMINOGLYCANS [Concomitant]
     Active Substance: GLYCOSAMINOGLYCANS
     Indication: Rash
     Route: 065
     Dates: start: 20220117, end: 20220314

REACTIONS (11)
  - Stomatitis [Unknown]
  - Myelosuppression [Recovered/Resolved]
  - Eye discharge [Unknown]
  - Diarrhoea [Recovered/Resolved]
  - Pruritus [Recovering/Resolving]
  - Rash [Recovering/Resolving]
  - Nausea [Unknown]
  - Vomiting [Unknown]
  - Dysgeusia [Not Recovered/Not Resolved]
  - Alopecia [Unknown]
  - Decreased appetite [Recovered/Resolved]

NARRATIVE: CASE EVENT DATE: 20220113
